FAERS Safety Report 14797205 (Version 2)
Quarter: 2018Q2

REPORT INFORMATION
  Report Type: Spontaneous
  Country: FR (occurrence: FR)
  Receive Date: 20180423
  Receipt Date: 20180502
  Transmission Date: 20180711
  Serious: Yes (Other)
  Sender: FDA-Public Use
  Company Number: FR-MERCK KGAA-2046320

PATIENT
  Age: 58 Year
  Sex: Female
  Weight: 61 kg

DRUGS (1)
  1. NOVOTHYROX [Suspect]
     Active Substance: LEVOTHYROXINE SODIUM
     Indication: PRODUCT USED FOR UNKNOWN INDICATION
     Route: 048
     Dates: start: 201703, end: 201710

REACTIONS (24)
  - Gastrointestinal disorder [Not Recovered/Not Resolved]
  - Dyspepsia [Unknown]
  - Balance disorder [Not Recovered/Not Resolved]
  - Asthenia [Unknown]
  - Diarrhoea [Not Recovered/Not Resolved]
  - Sleep disorder [Not Recovered/Not Resolved]
  - Anxiety [Not Recovered/Not Resolved]
  - Feeling cold [Not Recovered/Not Resolved]
  - Headache [Not Recovered/Not Resolved]
  - Metabolic disorder [Not Recovered/Not Resolved]
  - Vertigo [Not Recovered/Not Resolved]
  - Anxiety [Unknown]
  - Loss of personal independence in daily activities [Unknown]
  - Mood swings [Not Recovered/Not Resolved]
  - Abdominal pain [Unknown]
  - Hot flush [Not Recovered/Not Resolved]
  - Marital problem [Unknown]
  - Alopecia [Not Recovered/Not Resolved]
  - Depression [Recovered/Resolved]
  - Pain [Unknown]
  - Fatigue [Unknown]
  - Blood thyroid stimulating hormone normal [Recovered/Resolved]
  - Eye disorder [Unknown]
  - Visual impairment [Not Recovered/Not Resolved]

NARRATIVE: CASE EVENT DATE: 201704
